FAERS Safety Report 17219320 (Version 1)
Quarter: 2019Q4

REPORT INFORMATION
  Report Type: Spontaneous
  Country: US (occurrence: US)
  Receive Date: 20191209
  Receipt Date: 20191209
  Transmission Date: 20200122
  Serious: Yes (Hospitalization)
  Sender: FDA-Public Use
  Company Number: None

PATIENT
  Age: 74 Year
  Sex: Male

DRUGS (1)
  1. PEMBROLIZUMAB. [Suspect]
     Active Substance: PEMBROLIZUMAB
     Indication: LUNG NEOPLASM MALIGNANT
     Route: 042
     Dates: start: 20191107, end: 20191107

REACTIONS (5)
  - Acute generalised exanthematous pustulosis [None]
  - Rash erythematous [None]
  - Rash [None]
  - Eosinophilia [None]
  - Pustule [None]

NARRATIVE: CASE EVENT DATE: 20191129
